FAERS Safety Report 8536554-3 (Version None)
Quarter: 2012Q3

REPORT INFORMATION
  Report Type: 
  Country: None (occurrence: None)
  Receive Date: 20120725
  Receipt Date: 20120717
  Transmission Date: 20120928
  Serious: Yes (Death, Hospitalization)
  Sender: FDA-Public Use
  Company Number: JP-ROCHE-734934

PATIENT
  Sex: Male
  Weight: 63 kg

DRUGS (22)
  1. AVASTIN [Suspect]
     Indication: LUNG ADENOCARCINOMA RECURRENT
     Route: 041
     Dates: start: 20100224, end: 20100224
  2. AVASTIN [Suspect]
     Route: 041
     Dates: start: 20100716, end: 20100716
  3. CARBOPLATIN [Concomitant]
     Dosage: NOTE: DOSAGE IS UNCERTAIN.
     Route: 041
     Dates: start: 20100317, end: 20100317
  4. GLUCOBAY [Concomitant]
     Route: 048
  5. RAMELTEON [Concomitant]
     Dosage: NASEA(RAMOSETRON HYDROCHLORIDE)
     Route: 041
     Dates: start: 20100224, end: 20100428
  6. CARBOPLATIN [Concomitant]
     Dosage: NOTE: DOSAGE IS UNCERTAIN.
     Route: 041
     Dates: start: 20100407, end: 20100407
  7. RESTAMIN [Concomitant]
     Dosage: RESTAMIN(DIPHENHYDRAMINE HYDROCHLORIDE). DOSE FORM: PERORAL AGENT.
     Route: 048
     Dates: start: 20100224, end: 20100428
  8. AVASTIN [Suspect]
     Route: 041
     Dates: start: 20100428, end: 20100428
  9. AVASTIN [Suspect]
     Route: 041
     Dates: start: 20100524, end: 20100524
  10. CARBOPLATIN [Concomitant]
     Dosage: NOTE: DOSAGE IS UNCERTAIN.
     Route: 041
     Dates: start: 20100428, end: 20100428
  11. PACLITAXEL [Concomitant]
     Dosage: NOTE: DOSAGE IS UNCERTAIN.
     Route: 041
     Dates: start: 20100428, end: 20100428
  12. AVASTIN [Suspect]
     Route: 041
     Dates: start: 20100407, end: 20100407
  13. PACLITAXEL [Concomitant]
     Dosage: NOTE: DOSAGE IS UNCERTAIN.
     Route: 041
     Dates: start: 20100317, end: 20100317
  14. PACLITAXEL [Concomitant]
     Dosage: NOTE: DOSAGE IS UNCERTAIN.
     Route: 041
     Dates: start: 20100407, end: 20100407
  15. FAMOTIDINE [Concomitant]
     Dosage: DOSE FORM: PERORAL AGENT
     Route: 048
     Dates: start: 20100224, end: 20100428
  16. DEXAMETHASONE SODIUM PHOSPHATE [Concomitant]
     Route: 041
     Dates: start: 20100224, end: 20100428
  17. AVASTIN [Suspect]
     Route: 041
     Dates: start: 20100317, end: 20100317
  18. AVASTIN [Suspect]
     Route: 041
     Dates: start: 20100614, end: 20100614
  19. AVASTIN [Suspect]
     Route: 041
     Dates: start: 20100809, end: 20100809
  20. CARBOPLATIN [Concomitant]
     Dosage: DOSAGE IS UNCERTAIN.
     Route: 041
     Dates: start: 20100224, end: 20100224
  21. PACLITAXEL [Concomitant]
     Dosage: DOSAGE IS UNCERTAIN.
     Route: 041
     Dates: start: 20100224, end: 20100224
  22. NOVORAPID [Concomitant]
     Dosage: NOVORAPID(INSULIN ASPART(GENETICAL RECOMBINATION))
     Route: 058

REACTIONS (2)
  - HAEMOPTYSIS [None]
  - DISEASE PROGRESSION [None]
